FAERS Safety Report 11158103 (Version 1)
Quarter: 2015Q2

REPORT INFORMATION
  Report Type: Report from Study
  Country: US (occurrence: US)
  Receive Date: 20150603
  Receipt Date: 20150603
  Transmission Date: 20150821
  Serious: Yes (Other)
  Sender: FDA-Public Use
  Company Number: US-ROCHE-1519083

PATIENT
  Age: 48 Year
  Sex: Female
  Weight: 84.9 kg

DRUGS (4)
  1. TARCEVA [Suspect]
     Active Substance: ERLOTINIB HYDROCHLORIDE
     Indication: NON-SMALL CELL LUNG CANCER
     Route: 048
     Dates: start: 20141125
  2. DESONIDE CREAM [Concomitant]
     Route: 061
     Dates: start: 201412
  3. DESONIDE CREAM [Concomitant]
     Route: 061
     Dates: start: 201412
  4. AVASTIN [Suspect]
     Active Substance: BEVACIZUMAB
     Indication: PRODUCT USED FOR UNKNOWN INDICATION
     Route: 042
     Dates: start: 20150508

REACTIONS (6)
  - Drug ineffective [Unknown]
  - Rash [Recovering/Resolving]
  - Cough [Not Recovered/Not Resolved]
  - Neoplasm [Unknown]
  - Dry eye [Not Recovered/Not Resolved]
  - Pruritus [Not Recovered/Not Resolved]

NARRATIVE: CASE EVENT DATE: 201412
